FAERS Safety Report 12232042 (Version 2)
Quarter: 2016Q2

REPORT INFORMATION
  Report Type: Spontaneous
  Country: US (occurrence: US)
  Receive Date: 20160401
  Receipt Date: 20160415
  Transmission Date: 20160815
  Serious: Yes (Other)
  Sender: FDA-Public Use
  Company Number: US-GLAXOSMITHKLINE-US2016GSK041388

PATIENT
  Age: 79 Year
  Sex: Male
  Weight: 87.54 kg

DRUGS (14)
  1. ROPINIROLE. [Suspect]
     Active Substance: ROPINIROLE
     Dosage: 7 MG, QD
     Dates: start: 2014
  2. ACYCLOVIR. [Suspect]
     Active Substance: ACYCLOVIR
     Indication: HERPES ZOSTER
     Dosage: 800 MG, QD
     Route: 048
     Dates: start: 20160211, end: 20160211
  3. PANTOPRAZOLE SODIUM. [Concomitant]
     Active Substance: PANTOPRAZOLE SODIUM
     Indication: ABDOMINAL DISCOMFORT
     Dosage: 40 MG, 1D
  4. SIMVASTATIN. [Concomitant]
     Active Substance: SIMVASTATIN
     Indication: BLOOD CHOLESTEROL ABNORMAL
     Dosage: 20 MG, 1D
     Dates: start: 2011
  5. TRAMADOL HCL TABLETS [Concomitant]
     Indication: BACK PAIN
     Dosage: 50 MG, Q6H PRN
  6. ROPINIROLE. [Suspect]
     Active Substance: ROPINIROLE
     Indication: RESTLESS LEGS SYNDROME
     Dosage: 5 MG, QD
     Dates: start: 1991, end: 2014
  7. GABAPENTIN. [Concomitant]
     Active Substance: GABAPENTIN
     Indication: DIABETIC NEUROPATHY
     Dosage: 400 MG, BID
  8. LYRICA [Suspect]
     Active Substance: PREGABALIN
     Indication: HERPES ZOSTER
     Dosage: 75 MG, 1D
     Dates: start: 201602
  9. LISINOPRIL. [Concomitant]
     Active Substance: LISINOPRIL
     Dosage: 2.5 MG, QD
  10. GLIPIZIDE. [Concomitant]
     Active Substance: GLIPIZIDE
     Indication: DIABETES MELLITUS
     Dosage: 5 MG, BID
  11. MELATONIN [Concomitant]
     Active Substance: MELATONIN
     Indication: INSOMNIA
     Dosage: 5 MG, 1D
     Dates: start: 2014
  12. TYLENOL [Concomitant]
     Active Substance: ACETAMINOPHEN
     Indication: RESTLESS LEGS SYNDROME
     Dosage: 1 DF, 1D
  13. TRAZODONE [Concomitant]
     Active Substance: TRAZODONE HYDROCHLORIDE
     Indication: INSOMNIA
     Dosage: 50 MG, QD
  14. TRAMADOL HCL TABLETS [Concomitant]
     Indication: RESTLESS LEGS SYNDROME

REACTIONS (14)
  - Fall [Unknown]
  - Cholecystectomy [Unknown]
  - Dizziness [Unknown]
  - Diabetes mellitus [Not Recovered/Not Resolved]
  - Colon cancer [Unknown]
  - Cancer surgery [Unknown]
  - Abdominal pain upper [Unknown]
  - Herpes zoster [Unknown]
  - Neuropathy peripheral [Not Recovered/Not Resolved]
  - Blood cholesterol abnormal [Not Recovered/Not Resolved]
  - Ankle fracture [Unknown]
  - Chest pain [Unknown]
  - Loss of consciousness [Unknown]
  - Insomnia [Unknown]

NARRATIVE: CASE EVENT DATE: 2006
